FAERS Safety Report 8060645-7 (Version None)
Quarter: 2012Q1

REPORT INFORMATION
  Report Type: 
  Country: None (occurrence: None)
  Receive Date: 20120120
  Receipt Date: 20120113
  Transmission Date: 20120608
  Serious: Yes (Hospitalization, Other)
  Sender: FDA-Public Use
  Company Number: US-US-EMD SERONO, INC.-7009110

PATIENT
  Sex: Female

DRUGS (3)
  1. IBUPROFEN [Concomitant]
     Indication: PREMEDICATION
  2. REBIF [Suspect]
     Indication: MULTIPLE SCLEROSIS
     Route: 058
     Dates: start: 20090126
  3. ACETAMINOPHEN [Concomitant]
     Indication: PREMEDICATION

REACTIONS (6)
  - HAEMORRHAGE [None]
  - INTERVERTEBRAL DISC DISORDER [None]
  - MEMORY IMPAIRMENT [None]
  - INJECTION SITE ERYTHEMA [None]
  - NEURODERMATITIS [None]
  - INCONTINENCE [None]
